FAERS Safety Report 7249634-X (Version None)
Quarter: 2011Q1

REPORT INFORMATION
  Report Type: 
  Country: None (occurrence: None)
  Receive Date: 20110128
  Receipt Date: 20101215
  Transmission Date: 20110831
  Serious: Yes (Hospitalization)
  Sender: FDA-Public Use
  Company Number: US-BAYER-201031592NA

PATIENT
  Sex: Female
  Weight: 61.5 kg

DRUGS (4)
  1. IBUPROFEN [Concomitant]
     Indication: ANTIINFLAMMATORY THERAPY
     Dosage: UNK UNK, PRN
  2. YAZ [Suspect]
     Indication: PRODUCT USED FOR UNKNOWN INDICATION
     Dosage: UNK
     Route: 048
  3. ASCORBIC ACID [Concomitant]
     Indication: MEDICAL DIET
     Dosage: UNK
  4. YASMIN [Suspect]
     Indication: ORAL CONTRACEPTION
     Dosage: UNK UNK, QD
     Route: 048
     Dates: start: 20070701, end: 20080701

REACTIONS (3)
  - DYSPNOEA [None]
  - FLANK PAIN [None]
  - PULMONARY EMBOLISM [None]
